FAERS Safety Report 5415186-X (Version None)
Quarter: 2007Q3

REPORT INFORMATION
  Report Type: 
  Country: None (occurrence: None)
  Receive Date: 20070815
  Receipt Date: 20070716
  Transmission Date: 20080115
  Serious: No
  Sender: FDA-Public Use
  Company Number: A0664306A

PATIENT
  Age: 74 Year
  Sex: Male

DRUGS (4)
  1. COREG CR [Suspect]
     Indication: HYPERTENSION
     Dosage: 40MG PER DAY
     Route: 048
     Dates: start: 20070401
  2. NEXIUM [Concomitant]
  3. PENTASA [Concomitant]
  4. K-DUR 10 [Concomitant]

REACTIONS (1)
  - ERECTILE DYSFUNCTION [None]
